FAERS Safety Report 11914881 (Version 2)
Quarter: 2016Q1

REPORT INFORMATION
  Report Type: Spontaneous
  Country: US (occurrence: US)
  Receive Date: 20160113
  Receipt Date: 20160205
  Transmission Date: 20160526
  Serious: Yes (Other)
  Sender: FDA-Public Use
  Company Number: US-GILEAD-2016-0192198

PATIENT
  Age: 60 Year
  Sex: Male
  Weight: 75.74 kg

DRUGS (7)
  1. TAMULOSIN [Concomitant]
     Active Substance: TAMSULOSIN
     Route: 065
  2. OXYCODONE [Concomitant]
     Active Substance: OXYCODONE
     Route: 065
  3. OMEPRAZOLE. [Concomitant]
     Active Substance: OMEPRAZOLE
     Indication: GASTROOESOPHAGEAL REFLUX DISEASE
     Dosage: 40 MG, UNK
     Route: 048
  4. HARVONI [Suspect]
     Active Substance: LEDIPASVIR\SOFOSBUVIR
     Indication: HEPATITIS C
     Dosage: UNK
     Route: 065
     Dates: start: 20150812, end: 20151006
  5. FLUTICASONE [Concomitant]
     Active Substance: FLUTICASONE\FLUTICASONE PROPIONATE
     Route: 065
  6. GABAPENTIN. [Concomitant]
     Active Substance: GABAPENTIN
     Route: 065
  7. XANAX [Concomitant]
     Active Substance: ALPRAZOLAM
     Route: 065

REACTIONS (2)
  - Hepatitis C [Unknown]
  - Drug ineffective [Unknown]

NARRATIVE: CASE EVENT DATE: 20151218
